FAERS Safety Report 8801865 (Version 2)
Quarter: 2014Q1

REPORT INFORMATION
  Report Type: Report from Study
  Country: US (occurrence: US)
  Receive Date: 20120921
  Receipt Date: 20140106
  Transmission Date: 20141002
  Serious: Yes (Death)
  Sender: FDA-Public Use
  Company Number: US-ROCHE-1098641

PATIENT
  Sex: Female
  Weight: 69 kg

DRUGS (9)
  1. AVASTIN [Suspect]
     Indication: APPENDIX CANCER
     Route: 042
     Dates: start: 20111130
  2. AVASTIN [Suspect]
     Indication: METASTASES TO NERVOUS SYSTEM
  3. DECADRON [Concomitant]
     Route: 042
  4. ALOXI [Concomitant]
     Route: 042
  5. EMEND [Concomitant]
     Route: 042
  6. OXALIPLATIN [Concomitant]
     Route: 065
  7. OXALIPLATIN [Concomitant]
     Route: 042
  8. FLUOROURACIL [Concomitant]
     Route: 065
  9. FLUOROURACIL [Concomitant]
     Dosage: 4272 CIV 46 HOURS
     Route: 042

REACTIONS (1)
  - Death [Fatal]
